FAERS Safety Report 20091704 (Version 1)
Quarter: 2021Q4

REPORT INFORMATION
  Report Type: Spontaneous
  Country: US (occurrence: US)
  Receive Date: 20211119
  Receipt Date: 20211119
  Transmission Date: 20220303
  Serious: Yes (Death, Other)
  Sender: FDA-Public Use
  Company Number: US-MALLINCKRODT-T202105094

PATIENT
  Age: 38 Year
  Sex: Female

DRUGS (2)
  1. UVADEX [Suspect]
     Active Substance: METHOXSALEN
     Indication: Graft versus host disease
     Dosage: UNK (EXTRACORPOREAL)
     Route: 050
  2. RUXOLITINIB [Concomitant]
     Active Substance: RUXOLITINIB
     Indication: Graft versus host disease
     Dosage: UNK
     Route: 065

REACTIONS (6)
  - Graft versus host disease [Fatal]
  - Opportunistic infection [Unknown]
  - Lymphoproliferative disorder [Unknown]
  - Bacteraemia [Unknown]
  - Epstein-Barr viraemia [Unknown]
  - Product use in unapproved indication [Unknown]
